FAERS Safety Report 9310272 (Version 2)
Quarter: 2013Q2

REPORT INFORMATION
  Report Type: Report from Study
  Country: CA (occurrence: CA)
  Receive Date: 20130527
  Receipt Date: 20130529
  Transmission Date: 20140414
  Serious: Yes (Death)
  Sender: FDA-Public Use
  Company Number: PHHY2011CA23616

PATIENT
  Sex: Female

DRUGS (3)
  1. ACLASTA [Suspect]
     Indication: OSTEOPOROSIS
     Dosage: 5 MG, ANNUALLY
     Route: 042
     Dates: start: 20100507
  2. ACLASTA [Suspect]
     Dosage: 5 MG, ANNUALLY
     Route: 042
     Dates: start: 20110722
  3. ACLASTA [Suspect]
     Dosage: 5 MG, ANNUALLY
     Route: 042
     Dates: start: 20120713

REACTIONS (2)
  - Small cell lung cancer [Fatal]
  - Infusion site haemorrhage [Unknown]
